FAERS Safety Report 12969314 (Version 2)
Quarter: 2016Q4

REPORT INFORMATION
  Report Type: Spontaneous
  Country: US (occurrence: US)
  Receive Date: 20161123
  Receipt Date: 20161219
  Transmission Date: 20170207
  Serious: Yes (Hospitalization, Other)
  Sender: FDA-Public Use
  Company Number: US-BELCHER PHARMACEUTICALS, LLC-2016VTS00325

PATIENT
  Age: 58 Year
  Sex: Female
  Weight: 70.3 kg

DRUGS (6)
  1. HYOSCYAMINE SULFATE SL [Suspect]
     Active Substance: HYOSCYAMINE SULFATE
     Indication: GASTROINTESTINAL DISORDER
     Dosage: 0.125 MG, 1X/DAY
     Route: 060
     Dates: start: 20160921, end: 20161002
  2. VISTARIL [Concomitant]
     Active Substance: HYDROXYZINE PAMOATE
     Dosage: UNK UNK, AS NEEDED
  3. VENTOLIN HFA [Concomitant]
     Active Substance: ALBUTEROL SULFATE
     Dosage: 90 ?G, UP TO 4X/DAY
  4. PROZAC [Concomitant]
     Active Substance: FLUOXETINE HYDROCHLORIDE
     Dosage: 20 MG, 1X/DAY
  5. CRESTOR [Concomitant]
     Active Substance: ROSUVASTATIN CALCIUM
  6. SYNTHROID [Concomitant]
     Active Substance: LEVOTHYROXINE SODIUM
     Dosage: 50 ?G, 1X/DAY

REACTIONS (9)
  - Balance disorder [Recovering/Resolving]
  - Cerebrovascular accident [Recovering/Resolving]
  - Brain oedema [Recovering/Resolving]
  - Arteriosclerosis [None]
  - Photophobia [Recovering/Resolving]
  - Cerebellar infarction [None]
  - Embolic stroke [None]
  - Nausea [Recovering/Resolving]
  - Migraine [Recovering/Resolving]

NARRATIVE: CASE EVENT DATE: 20160930
